FAERS Safety Report 5373718-4 (Version None)
Quarter: 2007Q2

REPORT INFORMATION
  Report Type: 
  Country: None (occurrence: None)
  Receive Date: 20070628
  Receipt Date: 20070618
  Transmission Date: 20071010
  Serious: Yes (Other)
  Sender: FDA-Public Use
  Company Number: FR-SANOFI-SYNTHELABO-A02200701789

PATIENT
  Age: 46 Year
  Sex: Male

DRUGS (1)
  1. KAYEXALATE [Suspect]
     Indication: RENAL FAILURE
     Dosage: UNK
     Route: 050

REACTIONS (2)
  - FOREIGN BODY TRAUMA [None]
  - RECTAL STENOSIS [None]
